FAERS Safety Report 19208114 (Version 2)
Quarter: 2021Q3

REPORT INFORMATION
  Report Type: Spontaneous
  Country: US (occurrence: US)
  Receive Date: 20210503
  Receipt Date: 20210702
  Transmission Date: 20211014
  Serious: No
  Sender: FDA-Public Use
  Company Number: US-BIOGEN-2021BI01003323

PATIENT
  Sex: Female

DRUGS (1)
  1. TECFIDERA [Suspect]
     Active Substance: DIMETHYL FUMARATE
     Indication: MULTIPLE SCLEROSIS
     Route: 065
     Dates: start: 20130417, end: 20130430

REACTIONS (3)
  - Abdominal pain upper [Recovered/Resolved]
  - Multiple sclerosis [Not Recovered/Not Resolved]
  - Decreased appetite [Recovered/Resolved]
